APPROVED DRUG PRODUCT: MORPHINE SULFATE
Active Ingredient: MORPHINE SULFATE
Strength: 20MG/5ML
Dosage Form/Route: SOLUTION;ORAL
Application: A202310 | Product #001
Applicant: CHARTWELL MOLECULAR HOLDINGS LLC
Approved: Oct 30, 2015 | RLD: No | RS: No | Type: DISCN